FAERS Safety Report 21305716 (Version 1)
Quarter: 2022Q3

REPORT INFORMATION
  Report Type: Other
  Country: US (occurrence: None)
  Receive Date: 20220908
  Receipt Date: 20220908
  Transmission Date: 20221026
  Serious: No
  Sender: FDA-Public Use
  Company Number: US-ROCHE-3173479

PATIENT
  Age: 59 Year
  Sex: Male

DRUGS (1)
  1. OCREVUS [Suspect]
     Active Substance: OCRELIZUMAB
     Indication: Relapsing-remitting multiple sclerosis
     Dosage: 300 MG DAY 1 AND DAY 15, THEN 600 MG EVERY 6 MONTHS?DOT: 4-MAY-2022, 2-NOV-2021, 3-MAY-2021, 16-NOV-
     Route: 042
     Dates: start: 20190430

REACTIONS (1)
  - COVID-19 [Not Recovered/Not Resolved]

NARRATIVE: CASE EVENT DATE: 20210101
